FAERS Safety Report 11992811 (Version 1)
Quarter: 2016Q1

REPORT INFORMATION
  Report Type: Spontaneous
  Country: US (occurrence: None)
  Receive Date: 20160202
  Receipt Date: 20160202
  Transmission Date: 20160526
  Serious: Yes (Hospitalization, Disabling, Other)
  Sender: FDA-Public Use
  Company Number: None

PATIENT
  Age: 35 Year
  Sex: Female
  Weight: 142 kg

DRUGS (3)
  1. PROTEIN SUPPLEMENTATION [Concomitant]
  2. KETOROLAC [Suspect]
     Active Substance: KETOROLAC\KETOROLAC TROMETHAMINE
     Indication: INFLAMMATION
     Dosage: 10 MG TAKE UP TO 3 DAILY, AS NEEDED, TAKEN BY MOUTH
     Dates: start: 20150311, end: 20150514
  3. MULTIVITAMIKN [Concomitant]

REACTIONS (4)
  - Pain [None]
  - Myalgia [None]
  - Headache [None]
  - Muscle spasms [None]

NARRATIVE: CASE EVENT DATE: 20150301
